FAERS Safety Report 9102063 (Version 2)
Quarter: 2013Q2

REPORT INFORMATION
  Report Type: Report from Study
  Country: US (occurrence: US)
  Receive Date: 20130218
  Receipt Date: 20130514
  Transmission Date: 20140414
  Serious: Yes (Other)
  Sender: FDA-Public Use
  Company Number: US-ROCHE-638116

PATIENT
  Sex: 0

DRUGS (3)
  1. CAPECITABINE [Suspect]
     Indication: BREAST CANCER
     Dosage: ARM A: ON DAYS 1-14 OF A 3 WEEK CYCLE FOR  4 CYCLE?ARM B: ON DAYS 1-7 OF A 2 WEEK CYCLES FOR 8 CYCLE
     Route: 065
  2. DOCETAXEL [Suspect]
     Indication: BREAST CANCER
     Dosage: RM A: 100 MG/M2 Q3 WEEKS FOR 4 CYCLESARM B: 50 MG/M2 ON DAY 1 OF A 2 WEEK CYCLE FOR 8 CYCLES
     Route: 065
  3. DOCETAXEL [Suspect]
     Route: 065

REACTIONS (9)
  - Palmar-plantar erythrodysaesthesia syndrome [Unknown]
  - Neuropathy peripheral [Unknown]
  - Neutropenia [Unknown]
  - Febrile neutropenia [Unknown]
  - Anaemia [Unknown]
  - Diarrhoea [Unknown]
  - Fatigue [Unknown]
  - Hyperglycaemia [Unknown]
  - Oesophageal obstruction [Unknown]
